FAERS Safety Report 10469583 (Version 1)
Quarter: 2014Q3

REPORT INFORMATION
  Report Type: Spontaneous
  Country: US (occurrence: None)
  Receive Date: 20140919
  Receipt Date: 20140919
  Transmission Date: 20150326
  Serious: Yes (Other)
  Sender: FDA-Public Use
  Company Number: 153704

PATIENT
  Age: 69 Year

DRUGS (5)
  1. RITUXAN [Concomitant]
     Active Substance: RITUXIMAB
  2. PREDNISONE. [Concomitant]
     Active Substance: PREDNISONE
  3. ADRIAMYCIN [Suspect]
     Active Substance: DOXORUBICIN HYDROCHLORIDE
     Indication: CHRONIC LYMPHOCYTIC LEUKAEMIA
     Dosage: 50MG/M2, IV, EVERY 3 WEEKS
     Route: 042
     Dates: start: 20130214, end: 20130711
  4. CYTOXAN [Concomitant]
     Active Substance: CYCLOPHOSPHAMIDE
  5. VINCRISTINE [Concomitant]
     Active Substance: VINCRISTINE

REACTIONS (3)
  - Cellulitis [None]
  - Febrile neutropenia [None]
  - Pneumonia [None]

NARRATIVE: CASE EVENT DATE: 20130221
